FAERS Safety Report 6807962-3 (Version None)
Quarter: 2010Q2

REPORT INFORMATION
  Report Type: 
  Country: None (occurrence: None)
  Receive Date: 20100629
  Receipt Date: 20090610
  Transmission Date: 20101027
  Serious: No
  Sender: FDA-Public Use
  Company Number: US-PFIZER INC-2009182798

PATIENT
  Sex: Male
  Weight: 83.9 kg

DRUGS (2)
  1. TIKOSYN [Suspect]
     Indication: ATRIAL FIBRILLATION
     Dosage: 500 UG, 2X/DAY
     Route: 048
     Dates: start: 20080901
  2. LIPITOR [Concomitant]

REACTIONS (2)
  - EAR INFECTION [None]
  - EAR PRURITUS [None]
